FAERS Safety Report 6237050-9 (Version None)
Quarter: 2009Q2

REPORT INFORMATION
  Report Type: 
  Country: None (occurrence: None)
  Receive Date: 20090609
  Receipt Date: 20090527
  Transmission Date: 20091009
  Serious: Yes (Hospitalization)
  Sender: FDA-Public Use
  Company Number: TRP_06255_2009

PATIENT
  Age: 7 Year
  Sex: Male

DRUGS (2)
  1. AMPHOTERICIN B [Suspect]
     Indication: VISCERAL LEISHMANIASIS
     Dosage: (3 MG/KG PER DAY FOR 6 DAYS), (3 MG/KG PER DAY FOR 1 WEEK 3 DAYS)
  2. AMPHOTERICIN B [Suspect]
     Indication: VISCERAL LEISHMANIASIS
     Dosage: (3 MG/KG PER DAY FOR 6 DAYS), (3 MG/KG PER DAY FOR 1 WEEK 3 DAYS)

REACTIONS (8)
  - ALANINE AMINOTRANSFERASE INCREASED [None]
  - ANAEMIA [None]
  - ASPARTATE AMINOTRANSFERASE INCREASED [None]
  - BLOOD IMMUNOGLOBULIN G INCREASED [None]
  - DISEASE RECURRENCE [None]
  - PYREXIA [None]
  - SPLENOMEGALY [None]
  - VISCERAL LEISHMANIASIS [None]
